FAERS Safety Report 9448717 (Version 1)
Quarter: 2013Q3

REPORT INFORMATION
  Report Type: Spontaneous
  Country: US (occurrence: US)
  Receive Date: 20130808
  Receipt Date: 20130808
  Transmission Date: 20140515
  Serious: Yes (Other)
  Sender: FDA-Public Use
  Company Number: US-BAYER-2013-095393

PATIENT
  Age: 63 Year
  Sex: Female
  Weight: 58.96 kg

DRUGS (1)
  1. ALKA-SELTZER PLUS SEVERE SINUS CONGESTIONCOUGH DAY/NIGHT LG COMBI [Suspect]
     Indication: COUGH
     Dosage: 2 DF, ONCE
     Route: 048
     Dates: start: 20130805, end: 20130805

REACTIONS (4)
  - Blood pressure decreased [Recovered/Resolved]
  - Dizziness [Recovered/Resolved]
  - Asthenia [Recovered/Resolved]
  - Hyperhidrosis [Recovered/Resolved]
